FAERS Safety Report 10018009 (Version 2)
Quarter: 2014Q1

REPORT INFORMATION
  Report Type: Spontaneous
  Country: US (occurrence: US)
  Receive Date: 20140318
  Receipt Date: 20140318
  Transmission Date: 20141002
  Serious: Yes (Other)
  Sender: FDA-Public Use
  Company Number: US-PERRIGO-14US002532

PATIENT
  Age: 4 Year
  Sex: Female
  Weight: 17.23 kg

DRUGS (2)
  1. GUAIFENESIN DM CHRY LIQ 419 [Suspect]
     Indication: COUGH
     Dosage: 2.5 ML, SINGLE
     Route: 048
     Dates: start: 20140225, end: 20140225
  2. GUAIFENESIN DM CHRY LIQ 419 [Suspect]
     Indication: INCREASED UPPER AIRWAY SECRETION

REACTIONS (3)
  - Febrile convulsion [Recovered/Resolved]
  - Pyrexia [Recovered/Resolved]
  - Malaise [Recovered/Resolved]
